FAERS Safety Report 4664469-X (Version None)
Quarter: 2005Q2

REPORT INFORMATION
  Report Type: 
  Country: None (occurrence: None)
  Receive Date: 20050516
  Receipt Date: 20050516
  Transmission Date: 20051028
  Serious: Yes (Hospitalization)
  Sender: FDA-Public Use
  Company Number: None

PATIENT
  Age: 57 Year
  Sex: Male
  Weight: 88.4514 kg

DRUGS (2)
  1. VIOXX [Suspect]
     Indication: PAIN
     Dosage: 1-2 TABLETS DAILY AS NEEDED
     Dates: start: 20000101, end: 20040623
  2. VIOXX [Suspect]
     Indication: PAIN IN EXTREMITY
     Dosage: 1-2 TABLETS DAILY AS NEEDED
     Dates: start: 20000101, end: 20040623

REACTIONS (1)
  - HAEMORRHAGE [None]
